FAERS Safety Report 6128213-1 (Version None)
Quarter: 2009Q1

REPORT INFORMATION
  Report Type: 
  Country: None (occurrence: None)
  Receive Date: 20090323
  Receipt Date: 20090318
  Transmission Date: 20090719
  Serious: Yes (Death, Hospitalization)
  Sender: FDA-Public Use
  Company Number: NL-ASTRAZENECA-2009AC00844

PATIENT
  Age: 17 Year
  Sex: Male

DRUGS (4)
  1. PROPOFOL [Suspect]
     Indication: SEDATION
     Dosage: 8 MG/KG/HR FOR A TOTAL 14 HOURS DURING THE FIRST 2 DAYS
     Route: 042
  2. PROPOFOL [Suspect]
     Dosage: THE SECOND DAY
     Route: 042
  3. PROPOFOL [Suspect]
     Dosage: THE FOURTH DAY
     Route: 042
  4. MANNITOL [Concomitant]

REACTIONS (1)
  - PROPOFOL INFUSION SYNDROME [None]
